FAERS Safety Report 9585719 (Version 2)
Quarter: 2014Q1

REPORT INFORMATION
  Report Type: Spontaneous
  Country: GB (occurrence: GB)
  Receive Date: 20131003
  Receipt Date: 20140128
  Transmission Date: 20141002
  Serious: Yes (Hospitalization)
  Sender: FDA-Public Use
  Company Number: GB-ROCHE-1283694

PATIENT
  Age: 62 Year
  Sex: Female

DRUGS (6)
  1. MABTHERA [Suspect]
     Indication: RHEUMATOID ARTHRITIS
     Route: 065
     Dates: start: 20070101
  2. FLUTICASONE [Concomitant]
     Route: 065
     Dates: start: 20121231
  3. NABUMETONE [Concomitant]
     Route: 065
     Dates: start: 20130101, end: 20130821
  4. SALBUTAMOL [Concomitant]
     Route: 065
     Dates: start: 20130103
  5. SIMVASTATIN [Concomitant]
     Route: 065
     Dates: start: 20130101
  6. PARACETAMOL [Concomitant]

REACTIONS (1)
  - Diarrhoea [Unknown]
